FAERS Safety Report 10562032 (Version 1)
Quarter: 2014Q4

REPORT INFORMATION
  Report Type: Report from Study
  Country: CN (occurrence: CN)
  Receive Date: 20141104
  Receipt Date: 20141104
  Transmission Date: 20150529
  Serious: Yes (Hospitalization)
  Sender: FDA-Public Use
  Company Number: CN-BRISTOL-MYERS SQUIBB COMPANY-21550884

PATIENT
  Age: 47 Year
  Sex: Male

DRUGS (7)
  1. ACARBOSE. [Suspect]
     Active Substance: ACARBOSE
     Indication: TYPE 2 DIABETES MELLITUS
     Dosage: TABS
     Route: 048
     Dates: start: 20131210, end: 20140219
  2. TELMISARTAN. [Concomitant]
     Active Substance: TELMISARTAN
     Indication: HYPERTENSION
  3. VALSARTAN. [Concomitant]
     Active Substance: VALSARTAN
     Indication: HYPERTENSION
  4. NIMODIPINE. [Concomitant]
     Active Substance: NIMODIPINE
     Indication: HYPERLIPIDAEMIA
  5. ACIPIMOX [Concomitant]
     Active Substance: ACIPIMOX
     Indication: HYPERLIPIDAEMIA
  6. GLUCOPHAGE [Suspect]
     Active Substance: METFORMIN HYDROCHLORIDE
     Indication: TYPE 2 DIABETES MELLITUS
     Route: 048
     Dates: start: 20130705, end: 20140219
  7. JANUVIA [Suspect]
     Active Substance: SITAGLIPTIN PHOSPHATE
     Indication: TYPE 2 DIABETES MELLITUS
     Dosage: TAB
     Route: 048
     Dates: start: 20130722, end: 20140219

REACTIONS (1)
  - Diabetic retinopathy [Recovered/Resolved]

NARRATIVE: CASE EVENT DATE: 20140219
